FAERS Safety Report 24734750 (Version 1)
Quarter: 2024Q4

REPORT INFORMATION
  Report Type: Report from Study
  Country: GR (occurrence: GR)
  Receive Date: 20241214
  Receipt Date: 20241214
  Transmission Date: 20250114
  Serious: Yes (Other)
  Sender: EMD SERONO INC
  Company Number: GR-Merck Healthcare KGaA-2024065074

PATIENT
  Age: 45 Year
  Sex: Male

DRUGS (1)
  1. REBIF [Suspect]
     Active Substance: INTERFERON BETA-1A
     Indication: Multiple sclerosis
     Dosage: FORM OF ADMIN: CARTRIDGE
     Dates: start: 20201204

REACTIONS (4)
  - Hypothermia [Unknown]
  - Asthenia [Unknown]
  - Chills [Unknown]
  - Fatigue [Unknown]
